FAERS Safety Report 9462184 (Version 1)
Quarter: 2013Q3

REPORT INFORMATION
  Report Type: Spontaneous
  Country: US (occurrence: None)
  Receive Date: 20130815
  Receipt Date: 20130815
  Transmission Date: 20140515
  Serious: Yes (Hospitalization)
  Sender: FDA-Public Use
  Company Number: None

PATIENT
  Age: 78 Year
  Sex: Female
  Weight: 81.8 kg

DRUGS (17)
  1. WARFARIN [Suspect]
     Indication: ATRIAL FIBRILLATION
     Dosage: 3 MG/2MG SS/MTWTHF
     Route: 048
  2. ASA [Suspect]
     Route: 048
  3. AMIODARONE [Concomitant]
  4. ULORIC [Concomitant]
  5. NADOLOL [Concomitant]
  6. GARLIC [Concomitant]
  7. NIACIN [Concomitant]
  8. VIT E [Concomitant]
  9. MVI [Concomitant]
  10. VIT C [Concomitant]
  11. PREMPRO [Concomitant]
  12. SYNTHROID [Concomitant]
  13. DIOVAN HCT [Concomitant]
  14. BUSPIRONE [Concomitant]
  15. BIOTIN [Concomitant]
  16. NORCO [Concomitant]
  17. CA MAGNESIUM [Concomitant]

REACTIONS (3)
  - Vaginal haemorrhage [None]
  - Female genital tract fistula [None]
  - International normalised ratio increased [None]
